FAERS Safety Report 19450061 (Version 1)
Quarter: 2021Q2

REPORT INFORMATION
  Report Type: Spontaneous
  Country: US (occurrence: US)
  Receive Date: 20210622
  Receipt Date: 20210622
  Transmission Date: 20210717
  Serious: No
  Sender: FDA-Public Use
  Company Number: US-GALTPHARMA-2021-US-009585

PATIENT
  Age: 39 Year
  Sex: Female

DRUGS (1)
  1. ORPHENGESIC FORTE [Suspect]
     Active Substance: ASPIRIN\CAFFEINE\ORPHENADRINE CITRATE
     Indication: HEADACHE
     Dosage: UNKNOWN
     Route: 048

REACTIONS (2)
  - Somnolence [Unknown]
  - Drug ineffective [Unknown]
